FAERS Safety Report 21278372 (Version 3)
Quarter: 2022Q3

REPORT INFORMATION
  Report Type: Spontaneous
  Country: US (occurrence: US)
  Receive Date: 20220831
  Receipt Date: 20220907
  Transmission Date: 20221027
  Serious: Yes (Other)
  Sender: FDA-Public Use
  Company Number: US-AMGEN-USASP2022148279

PATIENT
  Age: 69 Year
  Sex: Female
  Weight: 40.816 kg

DRUGS (7)
  1. EVENITY [Suspect]
     Active Substance: ROMOSOZUMAB-AQQG
     Indication: Fracture
     Dosage: UNK UNK, QMO (START DATE: THREE WEEKS)
     Route: 065
  2. EVENITY [Suspect]
     Active Substance: ROMOSOZUMAB-AQQG
     Indication: Off label use
  3. PROLIA [Suspect]
     Active Substance: DENOSUMAB
     Indication: Fracture
     Dosage: UNK
     Route: 065
  4. PROLIA [Suspect]
     Active Substance: DENOSUMAB
     Indication: Off label use
  5. RECLAST [Concomitant]
     Active Substance: ZOLEDRONIC ACID
     Indication: Fracture
     Dosage: UNK
  6. CALCIUM [Concomitant]
     Active Substance: CALCIUM
     Dosage: UNK
  7. VITAMIN D [Concomitant]
     Active Substance: VITAMIN D NOS
     Dosage: UNK

REACTIONS (15)
  - Thrombosis [Unknown]
  - Immunodeficiency [Unknown]
  - Fracture [Unknown]
  - Fatigue [Unknown]
  - Peripheral swelling [Unknown]
  - Muscular weakness [Unknown]
  - Muscle twitching [Unknown]
  - Herpes zoster [Unknown]
  - Feeling abnormal [Unknown]
  - Pain [Unknown]
  - Bone disorder [Unknown]
  - Off label use [Unknown]
  - Asthenia [Unknown]
  - Arthralgia [Unknown]
  - Muscle spasms [Unknown]
